FAERS Safety Report 7243937-0 (Version None)
Quarter: 2011Q1

REPORT INFORMATION
  Report Type: 
  Country: None (occurrence: None)
  Receive Date: 20110125
  Receipt Date: 20110114
  Transmission Date: 20110831
  Serious: Yes (Hospitalization)
  Sender: FDA-Public Use
  Company Number: B0695644A

PATIENT
  Sex: Female

DRUGS (6)
  1. DOCETAXEL [Suspect]
     Indication: METASTATIC SQUAMOUS CELL CARCINOMA
     Dosage: 686MG CUMULATIVE DOSE
     Route: 042
     Dates: start: 20100928
  2. AMLODIPINE [Concomitant]
     Dosage: 5MG PER DAY
     Dates: start: 20101224
  3. CALCIUM D3 [Concomitant]
     Dosage: 2000MG PER DAY
     Dates: start: 20101007
  4. IRBESARTAN [Concomitant]
     Dosage: 300MG PER DAY
     Dates: start: 20100915
  5. LAPATINIB [Suspect]
     Indication: METASTATIC SQUAMOUS CELL CARCINOMA
     Dosage: 123750MG CUMULATIVE DOSE
     Route: 048
     Dates: start: 20100928
  6. SODIUM CHLORIDE [Concomitant]
     Dosage: 100MG THREE TIMES PER DAY
     Dates: start: 20100915

REACTIONS (3)
  - DIARRHOEA [None]
  - HYPOKALAEMIA [None]
  - VOMITING [None]
